FAERS Safety Report 7945542-7 (Version None)
Quarter: 2011Q4

REPORT INFORMATION
  Report Type: 
  Country: None (occurrence: None)
  Receive Date: 20111129
  Receipt Date: 20111118
  Transmission Date: 20120403
  Serious: Yes (Hospitalization)
  Sender: FDA-Public Use
  Company Number: JP-SANOFI-AVENTIS-2011SA074706

PATIENT
  Age: 68 Year
  Sex: Male

DRUGS (3)
  1. PIOGLITAZONE [Concomitant]
  2. PLAVIX [Concomitant]
  3. AMARYL [Suspect]
     Route: 065

REACTIONS (1)
  - LACUNAR INFARCTION [None]
